FAERS Safety Report 5986755-3 (Version None)
Quarter: 2008Q4

REPORT INFORMATION
  Report Type: 
  Country: None (occurrence: None)
  Receive Date: 20081209
  Receipt Date: 20081110
  Transmission Date: 20090506
  Serious: No
  Sender: FDA-Public Use
  Company Number: US-BAYER-200814367BCC

PATIENT
  Age: 65 Year
  Sex: Female
  Weight: 102 kg

DRUGS (1)
  1. ALEVE [Suspect]
     Indication: ARTHRALGIA

REACTIONS (2)
  - ARTHRALGIA [None]
  - HEADACHE [None]
